FAERS Safety Report 5014153-8 (Version None)
Quarter: 2006Q2

REPORT INFORMATION
  Report Type: 
  Country: None (occurrence: None)
  Receive Date: 20060414
  Receipt Date: 20060106
  Transmission Date: 20061013
  Serious: No
  Sender: FDA-Public Use
  Company Number: 2006SP000105

PATIENT
  Age: 67 Year
  Sex: Female
  Weight: 91.173 kg

DRUGS (4)
  1. LUNESTA [Suspect]
     Indication: INSOMNIA
     Dosage: HS, ORAL
     Route: 048
     Dates: start: 20060104, end: 20060105
  2. LUNESTA [Suspect]
     Indication: PAIN
     Dosage: HS, ORAL
     Route: 048
     Dates: start: 20060104, end: 20060105
  3. TOPROL-XL [Concomitant]
  4. NEXIUM [Concomitant]

REACTIONS (2)
  - FATIGUE [None]
  - INSOMNIA [None]
